FAERS Safety Report 9105527 (Version 1)
Quarter: 2013Q1

REPORT INFORMATION
  Report Type: Spontaneous
  Country: None (occurrence: US)
  Receive Date: 20130221
  Receipt Date: 20130221
  Transmission Date: 20140127
  Serious: No
  Sender: FDA-Public Use
  Company Number: US-TEVA-336789USA

PATIENT
  Sex: 0

DRUGS (1)
  1. TREANDA [Suspect]
     Route: 042

REACTIONS (1)
  - Rash [Recovered/Resolved]
